FAERS Safety Report 8848576 (Version 2)
Quarter: 2012Q4

REPORT INFORMATION
  Report Type: 
  Country: JP (occurrence: JP)
  Receive Date: 20121018
  Receipt Date: 20121031
  Transmission Date: 20130627
  Serious: Yes (Hospitalization)
  Sender: FDA-Public Use
  Company Number: JP-GLAXOSMITHKLINE-B0837306A

PATIENT
  Age: 28 Year
  Sex: Female

DRUGS (5)
  1. LAMICTAL [Suspect]
     Route: 048
  2. PHENOBARBITAL [Concomitant]
     Route: 048
  3. GABAPENTIN [Concomitant]
     Route: 048
  4. DIAPP [Concomitant]
     Route: 054
  5. E KEPPRA [Concomitant]
     Dosage: 500MG Twice per day
     Route: 048

REACTIONS (4)
  - Gastrointestinal hypomotility [Recovering/Resolving]
  - Decreased activity [Recovering/Resolving]
  - Hypersomnia [Recovering/Resolving]
  - Weight decreased [Recovering/Resolving]
